FAERS Safety Report 12372947 (Version 1)
Quarter: 2016Q2

REPORT INFORMATION
  Report Type: Other
  Country: GB (occurrence: GB)
  Receive Date: 20160516
  Receipt Date: 20160516
  Transmission Date: 20160815
  Serious: Yes (Disabling, Other)
  Sender: FDA-Public Use
  Company Number: GB-MYLANLABS-2016M1019370

PATIENT

DRUGS (15)
  1. PRAVASTATIN [Concomitant]
     Active Substance: PRAVASTATIN\PRAVASTATIN SODIUM
     Dosage: UNK
     Dates: end: 201601
  2. VITAMIN D                          /00107901/ [Concomitant]
     Active Substance: ERGOCALCIFEROL
     Dosage: UNK
     Dates: end: 201601
  3. NAPROXEN. [Concomitant]
     Active Substance: NAPROXEN
     Dosage: UNK
  4. PARACETAMOL [Concomitant]
     Active Substance: ACETAMINOPHEN
     Dosage: UNK
  5. ROSE HIPS [Concomitant]
     Dosage: UNK
  6. VITAMIN B COMPOUND                 /00003501/ [Concomitant]
     Dosage: UNK
  7. CALCIUM [Concomitant]
     Active Substance: CALCIUM
     Dosage: UNK
     Dates: end: 201601
  8. COENZYME Q10 [Concomitant]
     Active Substance: UBIDECARENONE
     Dosage: UNK
  9. COCODAMOL [Concomitant]
     Active Substance: ACETAMINOPHEN\CODEINE PHOSPHATE
     Dosage: UNK
  10. GLUCOSAMINE + CHONDROITIN          /01430901/ [Concomitant]
     Dosage: UNK
  11. OMEGA-3 FISH OIL +VITAMIN D [Concomitant]
     Dosage: UNK
  12. ACTONEL [Concomitant]
     Active Substance: RISEDRONATE SODIUM
     Dosage: UNK
     Dates: end: 201601
  13. IBUPROFEN. [Concomitant]
     Active Substance: IBUPROFEN
     Dosage: UNK
  14. ANASTROZOLE. [Suspect]
     Active Substance: ANASTROZOLE
     Indication: ADJUVANT THERAPY
     Dosage: UNK
     Route: 048
     Dates: start: 201111
  15. LETROZOLE. [Suspect]
     Active Substance: LETROZOLE
     Indication: BREAST CANCER
     Dosage: UNK
     Route: 048
     Dates: start: 201305, end: 201512

REACTIONS (6)
  - Musculoskeletal stiffness [Unknown]
  - Neuralgia [Unknown]
  - Osteoarthritis [Not Recovered/Not Resolved]
  - Myalgia [Unknown]
  - Bone pain [Unknown]
  - Arthralgia [Not Recovered/Not Resolved]

NARRATIVE: CASE EVENT DATE: 201211
